FAERS Safety Report 15222343 (Version 1)
Quarter: 2018Q3

REPORT INFORMATION
  Report Type: Spontaneous
  Country: FR (occurrence: FR)
  Receive Date: 20180731
  Receipt Date: 20180731
  Transmission Date: 20181010
  Serious: Yes (Congenital Anomaly)
  Sender: FDA-Public Use
  Company Number: FR-ALLERGAN-1837811US

PATIENT
  Sex: Male
  Weight: 2.8 kg

DRUGS (4)
  1. DEROXAT [Suspect]
     Active Substance: PAROXETINE HYDROCHLORIDE
     Indication: MATERNAL EXPOSURE TIMING UNSPECIFIED
     Route: 064
  2. CITALOPRAM HYDROBROMIDE ? BP [Suspect]
     Active Substance: CITALOPRAM HYDROBROMIDE
     Indication: MATERNAL EXPOSURE TIMING UNSPECIFIED
     Dosage: 20 MG, QD
     Route: 064
  3. TERALITHE [Suspect]
     Active Substance: LITHIUM CARBONATE
     Indication: MATERNAL EXPOSURE TIMING UNSPECIFIED
     Route: 064
  4. LARGACTIL [Suspect]
     Active Substance: CHLORPROMAZINE
     Indication: MATERNAL EXPOSURE TIMING UNSPECIFIED
     Dosage: 1/2 CP, QD
     Route: 064

REACTIONS (4)
  - Glossoptosis [Not Recovered/Not Resolved]
  - Cleft palate [Not Recovered/Not Resolved]
  - Retrognathia [Not Recovered/Not Resolved]
  - Foetal exposure during pregnancy [Unknown]

NARRATIVE: CASE EVENT DATE: 20180208
